FAERS Safety Report 4839199-1 (Version None)
Quarter: 2005Q4

REPORT INFORMATION
  Report Type: 
  Country: None (occurrence: None)
  Receive Date: 20051025
  Receipt Date: 20050823
  Transmission Date: 20060501
  Serious: Yes (Other)
  Sender: FDA-Public Use
  Company Number: HQWYE085024AUG05

PATIENT

DRUGS (1)
  1. RAPAMUNE [Suspect]
     Indication: PROPHYLAXIS
     Dosage: VARIES; ORAL
     Route: 048
     Dates: start: 20050811

REACTIONS (2)
  - ANGIONEUROTIC OEDEMA [None]
  - LOCAL SWELLING [None]
